FAERS Safety Report 11574930 (Version 1)
Quarter: 2015Q3

REPORT INFORMATION
  Report Type: Spontaneous
  Country: CN (occurrence: CN)
  Receive Date: 20150930
  Receipt Date: 20150930
  Transmission Date: 20151125
  Serious: Yes (Other)
  Sender: FDA-Public Use
  Company Number: CN-SUN PHARMACEUTICAL INDUSTRIES LTD-2015RR-103227

PATIENT

DRUGS (3)
  1. CONMANA [Suspect]
     Active Substance: ICOTINIB
     Indication: CHEMOTHERAPY
     Dosage: 125 MG, TID
     Route: 065
     Dates: start: 2014
  2. CELECOXIB. [Concomitant]
     Active Substance: CELECOXIB
     Indication: ABDOMINAL PAIN
     Dosage: UNK
     Route: 065
     Dates: start: 2014
  3. GEMCITABINE [Suspect]
     Active Substance: GEMCITABINE\GEMCITABINE HYDROCHLORIDE
     Indication: CHEMOTHERAPY
     Dosage: 1000 MG/M2, ON DAYS 1, 8 AND 15 EVERY 4 WEEKS
     Route: 065
     Dates: start: 2014

REACTIONS (3)
  - Dermatitis acneiform [Recovered/Resolved]
  - Bone marrow failure [Recovered/Resolved]
  - Liver injury [Recovered/Resolved]

NARRATIVE: CASE EVENT DATE: 2014
